FAERS Safety Report 8813462 (Version 1)
Quarter: 2012Q4

REPORT INFORMATION
  Report Type: 
  Country: US (occurrence: US)
  Receive Date: 20120927
  Receipt Date: 20120927
  Transmission Date: 20130627
  Serious: No
  Sender: FDA-Public Use
  Company Number: US-AMGEN-USASP2012048969

PATIENT
  Age: 58 Year
  Sex: Female

DRUGS (10)
  1. PROLIA [Suspect]
     Indication: OSTEOPENIA
     Dosage: 60 mg, q6mo
     Dates: start: 20120627
  2. NEULASTA [Suspect]
     Indication: CHEMOTHERAPY
     Dosage: UNK
     Dates: start: 2009, end: 2009
  3. FEMARA [Concomitant]
     Dosage: UNK
  4. CYMBALTA [Concomitant]
     Indication: FIBROMYALGIA
     Dosage: UNK
  5. PRILOSEC                           /00661201/ [Concomitant]
     Dosage: UNK
  6. LEVOXYL [Concomitant]
     Dosage: UNK
  7. PULMICORT [Concomitant]
     Dosage: UNK
  8. PROVENTIL                          /00139501/ [Concomitant]
     Dosage: UNK
  9. CENTRUM SILVER                     /02363801/ [Concomitant]
     Dosage: UNK
  10. CALCIUM WITH VITAMIN D             /00944201/ [Concomitant]
     Dosage: UNK

REACTIONS (6)
  - Arthralgia [Not Recovered/Not Resolved]
  - Back pain [Not Recovered/Not Resolved]
  - Musculoskeletal pain [Not Recovered/Not Resolved]
  - Pain in jaw [Not Recovered/Not Resolved]
  - Fatigue [Not Recovered/Not Resolved]
  - Bone pain [Not Recovered/Not Resolved]
